FAERS Safety Report 18495021 (Version 1)
Quarter: 2020Q4

REPORT INFORMATION
  Report Type: Spontaneous
  Country: US (occurrence: US)
  Receive Date: 20201111
  Receipt Date: 20201111
  Transmission Date: 20210114
  Serious: Yes (Hospitalization)
  Sender: FDA-Public Use
  Company Number: None

PATIENT
  Age: 53 Year
  Sex: Female

DRUGS (3)
  1. CITRACAL CAL TAB +D [Concomitant]
  2. LORBRENA [Suspect]
     Active Substance: LORLATINIB
     Indication: NEOPLASM MALIGNANT
     Route: 048
  3. ACETAMINOPHEN. [Concomitant]
     Active Substance: ACETAMINOPHEN

REACTIONS (2)
  - Pulmonary oedema [None]
  - Therapy non-responder [None]

NARRATIVE: CASE EVENT DATE: 20201109
